FAERS Safety Report 7746243-0 (Version None)
Quarter: 2011Q3

REPORT INFORMATION
  Report Type: 
  Country: None (occurrence: None)
  Receive Date: 20110913
  Receipt Date: 20110902
  Transmission Date: 20111222
  Serious: Yes (Hospitalization, Other)
  Sender: FDA-Public Use
  Company Number: JM-BRISTOL-MYERS SQUIBB COMPANY-16051518

PATIENT
  Age: 64 Year
  Sex: Female

DRUGS (9)
  1. PRAVASTATIN SODIUM [Concomitant]
     Dosage: TABLET
  2. GLUCOBAY [Concomitant]
  3. AMARYL [Concomitant]
  4. CARBAZOCHROME SODIUM SULFONATE [Concomitant]
  5. KALLIDINOGENASE [Concomitant]
  6. TOCOPHEROL ACETATE [Concomitant]
  7. VILDAGLIPTIN [Concomitant]
  8. ACTOS [Concomitant]
  9. METFORMIN HCL [Suspect]
     Indication: DIABETES MELLITUS
     Route: 048

REACTIONS (1)
  - PUSTULAR PSORIASIS [None]
